FAERS Safety Report 6999474-1 (Version None)
Quarter: 2010Q3

REPORT INFORMATION
  Report Type: 
  Country: None (occurrence: None)
  Receive Date: 20100920
  Receipt Date: 20070507
  Transmission Date: 20110219
  Serious: Yes (Hospitalization, Other)
  Sender: FDA-Public Use
  Company Number: US-ASTRAZENECA-2006UW21252

PATIENT
  Age: 58 Year
  Sex: Female
  Weight: 92.1 kg

DRUGS (13)
  1. SEROQUEL [Suspect]
     Indication: INSOMNIA
     Route: 048
     Dates: start: 20030925
  2. SEROQUEL [Suspect]
     Route: 048
     Dates: end: 20050101
  3. WELLBUTRIN [Concomitant]
     Dates: start: 20050218, end: 20060215
  4. WELLBUTRIN [Concomitant]
     Dates: start: 20030915
  5. LAMICTAL [Concomitant]
     Dates: start: 20050802, end: 20050820
  6. LAMICTAL [Concomitant]
     Dates: start: 20060307
  7. LORAZEPAM [Concomitant]
     Route: 048
     Dates: start: 20040129
  8. PROPRANOLOL [Concomitant]
     Route: 048
     Dates: start: 20040202
  9. VIOXX [Concomitant]
     Route: 048
     Dates: start: 20030915
  10. SYNTHROID [Concomitant]
     Dosage: 75 MCG -175 MCG DAILY
     Route: 048
     Dates: start: 19971031
  11. LITHIUM CARBONATE [Concomitant]
     Dosage: 200 - 9000 MG DAILY
     Route: 048
     Dates: start: 20040129
  12. LISINOPRIL [Concomitant]
     Route: 048
     Dates: start: 20030915
  13. TRAZODONE HCL [Concomitant]
     Dates: start: 19971118

REACTIONS (3)
  - DIABETES MELLITUS [None]
  - DIABETES MELLITUS INADEQUATE CONTROL [None]
  - PANCREATITIS ACUTE [None]
